FAERS Safety Report 4994024-3 (Version None)
Quarter: 2006Q2

REPORT INFORMATION
  Report Type: 
  Country: None (occurrence: None)
  Receive Date: 20060503
  Receipt Date: 20060414
  Transmission Date: 20061013
  Serious: Yes (Hospitalization)
  Sender: FDA-Public Use
  Company Number: JP200604002827

PATIENT
  Sex: Female

DRUGS (5)
  1. HUMALOG MIX 75/25 [Suspect]
     Indication: DIABETES MELLITUS NON-INSULIN-DEPENDENT
     Dosage: SUBCUTANEOUS
     Route: 058
     Dates: start: 20050901, end: 20060301
  2. HUMULIN R [Suspect]
     Indication: DIABETES MELLITUS NON-INSULIN-DEPENDENT
     Dosage: SUBCUTANEOUS
     Route: 058
     Dates: start: 20060401
  3. INSULIN [Concomitant]
  4. NOVOLIN R [Concomitant]
  5. HUMALOG MIX PEN (HUMALOG MIX PEN) PEN, DISPOSABLE [Concomitant]

REACTIONS (4)
  - COLD SWEAT [None]
  - DYSSTASIA [None]
  - MALAISE [None]
  - PYREXIA [None]
